FAERS Safety Report 6168622-8 (Version None)
Quarter: 2009Q2

REPORT INFORMATION
  Report Type: 
  Country: None (occurrence: None)
  Receive Date: 20090424
  Receipt Date: 20090424
  Transmission Date: 20091009
  Serious: No
  Sender: FDA-Public Use
  Company Number: None

PATIENT
  Age: 23 Year
  Sex: Female
  Weight: 64.4108 kg

DRUGS (2)
  1. AVELOX [Suspect]
     Indication: EAR INFECTION
     Dosage: ONCE A DAY PO
     Route: 048
     Dates: start: 20090422, end: 20090422
  2. AVELOX [Suspect]
     Indication: SINUSITIS
     Dosage: ONCE A DAY PO
     Route: 048
     Dates: start: 20090422, end: 20090422

REACTIONS (6)
  - DECREASED APPETITE [None]
  - DIZZINESS [None]
  - NAUSEA [None]
  - PAIN [None]
  - PARAESTHESIA [None]
  - VOMITING [None]
